FAERS Safety Report 8963592 (Version 2)
Quarter: 2013Q1

REPORT INFORMATION
  Report Type: Spontaneous
  Country: US (occurrence: US)
  Receive Date: 20121214
  Receipt Date: 20130122
  Transmission Date: 20140127
  Serious: Yes (Hospitalization)
  Sender: FDA-Public Use
  Company Number: US-BAYER-2012-130354

PATIENT
  Age: 43 Year
  Sex: Female

DRUGS (13)
  1. YAZ [Suspect]
  2. YASMIN [Suspect]
  3. IRON [FERROUS SULFATE] [Concomitant]
     Indication: ANAEMIA
     Dosage: UNK
     Dates: start: 20090331
  4. CENTRUM [Concomitant]
     Dosage: UNK
     Dates: start: 20090331
  5. ADVAIR [Concomitant]
     Dosage: UNK
     Dates: start: 20090331
  6. HYDROCORTISONE [Concomitant]
  7. AZITHROMYCIN [Concomitant]
  8. OPIUM ALKALOIDS AND DERIVATIVES [Concomitant]
  9. CIPROFLOXACIN [Concomitant]
  10. ZOLPIDEM [Concomitant]
  11. AVELOX [Concomitant]
  12. MEPERIDINE [Concomitant]
  13. PROMETHAZINE [Concomitant]

REACTIONS (1)
  - Deep vein thrombosis [None]
